FAERS Safety Report 7320851-3 (Version None)
Quarter: 2011Q1

REPORT INFORMATION
  Report Type: 
  Country: None (occurrence: None)
  Receive Date: 20110228
  Receipt Date: 20110221
  Transmission Date: 20110831
  Serious: Yes (Hospitalization)
  Sender: FDA-Public Use
  Company Number: DE-TEVA-268110GER

PATIENT
  Age: 63 Year
  Sex: Female

DRUGS (2)
  1. GEMCITABINE [Suspect]
     Indication: PANCREATIC CARCINOMA
  2. ERLOTINIB [Suspect]

REACTIONS (1)
  - ORGANISING PNEUMONIA [None]
